FAERS Safety Report 9490444 (Version 1)
Quarter: 2013Q3

REPORT INFORMATION
  Report Type: Spontaneous
  Country: US (occurrence: None)
  Receive Date: 20130822
  Receipt Date: 20130822
  Transmission Date: 20140515
  Serious: Yes (Other)
  Sender: FDA-Public Use
  Company Number: None

PATIENT
  Age: 77 Year
  Sex: Female
  Weight: 68.04 kg

DRUGS (1)
  1. CELEBREX [Suspect]
     Dates: start: 20130801, end: 20130819

REACTIONS (5)
  - Medication error [None]
  - Pain [None]
  - Product label on wrong product [None]
  - Drug dispensing error [None]
  - Wrong drug administered [None]
